FAERS Safety Report 11029259 (Version 1)
Quarter: 2015Q2

REPORT INFORMATION
  Report Type: Spontaneous
  Country: BR (occurrence: BR)
  Receive Date: 20150415
  Receipt Date: 20150415
  Transmission Date: 20150821
  Serious: Yes (Hospitalization)
  Sender: FDA-Public Use
  Company Number: BR-009507513-1504BRA003983

PATIENT
  Age: 63 Year
  Sex: Female

DRUGS (8)
  1. LIPLESS [Concomitant]
     Active Substance: CIPROFIBRATE
     Dosage: UNK
     Dates: start: 2012
  2. LORAX (LORAZEPAM) [Concomitant]
     Dosage: 4 MG, QD
     Dates: start: 1980, end: 1987
  3. LORAX (LORAZEPAM) [Concomitant]
     Dosage: UNK UNK, QPM
     Dates: start: 1999
  4. OMEPRAZOLE. [Concomitant]
     Active Substance: OMEPRAZOLE
     Indication: OESOPHAGITIS
     Dosage: UNK
     Dates: start: 1999
  5. ADERA D3 [Concomitant]
     Dosage: UNK
     Dates: start: 2008
  6. OSTEOTRAT [Concomitant]
     Dosage: 1 DF, QW
     Route: 048
     Dates: start: 2014
  7. SIMVASTATIN. [Suspect]
     Active Substance: SIMVASTATIN
     Indication: BLOOD CHOLESTEROL INCREASED
     Dosage: 20 MG, QPM
     Route: 048
     Dates: start: 1999
  8. SIMVASTATIN. [Suspect]
     Active Substance: SIMVASTATIN
     Indication: BLOOD TRIGLYCERIDES INCREASED

REACTIONS (47)
  - Pain [Unknown]
  - Memory impairment [Not Recovered/Not Resolved]
  - Dizziness [Unknown]
  - Rib fracture [Recovered/Resolved]
  - Urine output increased [Not Recovered/Not Resolved]
  - Back pain [Unknown]
  - Fear [Not Recovered/Not Resolved]
  - Gastrooesophageal reflux disease [Not Recovered/Not Resolved]
  - Balance disorder [Not Recovered/Not Resolved]
  - Bladder pain [Not Recovered/Not Resolved]
  - Lactose intolerance [Not Recovered/Not Resolved]
  - Syncope [Unknown]
  - Inflammation [Recovered/Resolved]
  - Crying [Not Recovered/Not Resolved]
  - Head discomfort [Not Recovered/Not Resolved]
  - Constipation [Not Recovered/Not Resolved]
  - Pain in extremity [Unknown]
  - Hypertension [Recovered/Resolved]
  - Anxiety [Not Recovered/Not Resolved]
  - Insomnia [Not Recovered/Not Resolved]
  - Nightmare [Unknown]
  - Infection [Not Recovered/Not Resolved]
  - Hypoaesthesia [Not Recovered/Not Resolved]
  - Amnesia [Not Recovered/Not Resolved]
  - Dry mouth [Not Recovered/Not Resolved]
  - Muscle spasms [Unknown]
  - Vision blurred [Unknown]
  - Upper limb fracture [Recovered/Resolved]
  - Pain [Not Recovered/Not Resolved]
  - Agitation [Unknown]
  - Eye pruritus [Unknown]
  - Irritable bowel syndrome [Not Recovered/Not Resolved]
  - Blood cholesterol abnormal [Unknown]
  - Nervousness [Not Recovered/Not Resolved]
  - Psychiatric symptom [Not Recovered/Not Resolved]
  - Thirst [Not Recovered/Not Resolved]
  - Muscular weakness [Not Recovered/Not Resolved]
  - Depression [Unknown]
  - Hot flush [Unknown]
  - Joint injury [Recovered/Resolved]
  - Gastrointestinal pain [Not Recovered/Not Resolved]
  - Peripheral embolism [Recovered/Resolved]
  - Hyperhidrosis [Not Recovered/Not Resolved]
  - Fall [Recovered/Resolved]
  - Urinary tract infection [Unknown]
  - Confusional state [Not Recovered/Not Resolved]
  - Malaise [Unknown]

NARRATIVE: CASE EVENT DATE: 1999
